FAERS Safety Report 22608455 (Version 2)
Quarter: 2023Q2

REPORT INFORMATION
  Report Type: Other
  Country: US (occurrence: US)
  Receive Date: 20230616
  Receipt Date: 20230629
  Transmission Date: 20230721
  Serious: Yes (Other)
  Sender: FDA-Public Use
  Company Number: US-TOLMAR, INC.-23US041012

PATIENT
  Sex: Female

DRUGS (4)
  1. BENZOYL PEROXIDE\CLINDAMYCIN PHOSPHATE [Suspect]
     Active Substance: BENZOYL PEROXIDE\CLINDAMYCIN PHOSPHATE
     Indication: Psoriasis
     Dosage: UNK
     Route: 003
  2. DOXYCYCLINE [Suspect]
     Active Substance: DOXYCYCLINE
     Indication: Psoriasis
     Dosage: 100 MILLIGRAM
     Route: 048
     Dates: start: 20230330
  3. CLINDAMYCIN [Suspect]
     Active Substance: CLINDAMYCIN
     Indication: Psoriasis
     Dosage: UNK
  4. CLINDAMYCIN [Suspect]
     Active Substance: CLINDAMYCIN
     Indication: Psoriasis
     Dosage: UNK

REACTIONS (4)
  - Psoriatic arthropathy [Unknown]
  - Hidradenitis [Unknown]
  - Nail dystrophy [Unknown]
  - Drug ineffective for unapproved indication [Unknown]
